FAERS Safety Report 8110216-9 (Version None)
Quarter: 2012Q1

REPORT INFORMATION
  Report Type: 
  Country: None (occurrence: None)
  Receive Date: 20120202
  Receipt Date: 20120126
  Transmission Date: 20120608
  Serious: No
  Sender: FDA-Public Use
  Company Number: US-AMGEN-USASP2010008999

PATIENT
  Age: 59 Year
  Sex: Female
  Weight: 81.633 kg

DRUGS (12)
  1. CLONAZEPAM [Concomitant]
     Indication: NECK PAIN
  2. RISEDRONATE SODIUM [Concomitant]
     Indication: OSTEOPOROSIS
     Dosage: UNK
  3. MEFENAMIC ACID [Concomitant]
     Indication: FIBROMYALGIA
     Dosage: UNK
  4. ENBREL [Suspect]
     Indication: PSORIATIC ARTHROPATHY
     Dosage: 50 MG, QWK
     Dates: start: 20100806, end: 20101001
  5. HUMIRA [Suspect]
     Indication: PSORIATIC ARTHROPATHY
     Dosage: 40 MG, UNK
     Dates: start: 20010101, end: 20100801
  6. LEVOTHYROXINE SODIUM [Concomitant]
     Indication: HYPOTHYROIDISM
     Dosage: 50 MUG, QD
  7. IBUPROFEN (ADVIL) [Suspect]
     Indication: FIBROMYALGIA
  8. CLONAZEPAM [Concomitant]
     Indication: RESTLESS LEGS SYNDROME
  9. HUMIRA [Suspect]
     Dosage: 40 MG, UNK
     Dates: start: 20110401
  10. CLONAZEPAM [Concomitant]
     Indication: ANXIETY
     Dosage: 0.5 MG, QD
  11. CITALOPRAM HYDROBROMIDE [Concomitant]
     Indication: FIBROMYALGIA
     Dosage: 10 MG, QD
  12. CALCIUM WITH VITAMIN D             /00944201/ [Concomitant]
     Dosage: UNK

REACTIONS (20)
  - MUSCULOSKELETAL PAIN [None]
  - DECREASED APPETITE [None]
  - BLOOD URINE PRESENT [None]
  - BLOOD CHOLESTEROL INCREASED [None]
  - PYREXIA [None]
  - MALAISE [None]
  - FIBROMYALGIA [None]
  - NECK PAIN [None]
  - PAPULE [None]
  - INJECTION SITE HAEMORRHAGE [None]
  - ABDOMINAL PAIN UPPER [None]
  - BACK PAIN [None]
  - INJECTION SITE NODULE [None]
  - ERYTHEMA [None]
  - THERAPY REGIMEN CHANGED [None]
  - ORAL CANDIDIASIS [None]
  - NAIL BED INFLAMMATION [None]
  - FLUSHING [None]
  - INJECTION SITE HAEMATOMA [None]
  - ONYCHOMYCOSIS [None]
